FAERS Safety Report 5543599-4 (Version None)
Quarter: 2007Q4

REPORT INFORMATION
  Report Type: 
  Country: None (occurrence: None)
  Receive Date: 20071206
  Receipt Date: 20071130
  Transmission Date: 20080405
  Serious: Yes (Other)
  Sender: FDA-Public Use
  Company Number: 2007SP024163

PATIENT
  Sex: Male

DRUGS (2)
  1. PEG-INTRON [Suspect]
     Indication: HEPATITIS C
     Dosage: SC
     Route: 058
  2. REBETOL [Suspect]
     Indication: HEPATITIS C
     Dosage: PO
     Route: 048

REACTIONS (10)
  - ANAEMIA [None]
  - ANOREXIA [None]
  - ASTHENIA [None]
  - COUGH [None]
  - DEHYDRATION [None]
  - DRY MOUTH [None]
  - FATIGUE [None]
  - FLUID INTAKE REDUCED [None]
  - INSOMNIA [None]
  - TREMOR [None]
